FAERS Safety Report 5241865-3 (Version None)
Quarter: 2007Q1

REPORT INFORMATION
  Report Type: 
  Country: None (occurrence: None)
  Receive Date: 20070212
  Receipt Date: 20070130
  Transmission Date: 20070707
  Serious: Yes (Other)
  Sender: FDA-Public Use
  Company Number: A-US2006-12222

PATIENT
  Age: 68 Year
  Sex: Female

DRUGS (12)
  1. TRACLEER [Suspect]
     Indication: PULMONARY HYPERTENSION
     Dosage: 62.5 MG, BID, ORAL; 125 MG,  BID, ORAL
     Route: 048
     Dates: start: 20051101, end: 20051130
  2. TRACLEER [Suspect]
     Indication: PULMONARY HYPERTENSION
     Dosage: 62.5 MG, BID, ORAL; 125 MG,  BID, ORAL
     Route: 048
     Dates: start: 20051201, end: 20060502
  3. WARFARIN SODIUM [Concomitant]
  4. PRINIVIL [Concomitant]
  5. LANOXIN [Concomitant]
  6. LASIX [Concomitant]
  7. CALCIUM (CALCIUM CARBONATE) [Concomitant]
  8. MAGNESIUM (MAGNESIUM ASPARTATE) [Concomitant]
  9. SPIRONOLACTONE [Concomitant]
  10. SYNTHROID [Concomitant]
  11. IRON (IRON) [Concomitant]
  12. PROCRIT [Concomitant]

REACTIONS (8)
  - ABDOMINAL DISTENSION [None]
  - ANAEMIA [None]
  - CONDITION AGGRAVATED [None]
  - FLUID RETENTION [None]
  - OEDEMA PERIPHERAL [None]
  - POLYP COLORECTAL [None]
  - VASODILATATION [None]
  - WEIGHT INCREASED [None]
